FAERS Safety Report 10184067 (Version 1)
Quarter: 2014Q2

REPORT INFORMATION
  Report Type: Spontaneous
  Country: DE (occurrence: DE)
  Receive Date: 20140520
  Receipt Date: 20140520
  Transmission Date: 20141212
  Serious: Yes (Other)
  Sender: FDA-Public Use
  Company Number: DE-GLAXOSMITHKLINE-D0083986A

PATIENT
  Sex: Female
  Weight: 69 kg

DRUGS (5)
  1. LAMICTAL [Suspect]
     Indication: EPILEPSY
     Dosage: 100MG PER DAY
     Route: 048
     Dates: start: 20120828
  2. ORFIRIL LONG [Suspect]
     Indication: EPILEPSY
     Dosage: 600MG PER DAY
     Route: 048
     Dates: start: 20060201
  3. MELATONIN [Suspect]
     Indication: SLEEP DISORDER
     Dosage: 9MG PER DAY
     Route: 048
  4. ABILIFY [Suspect]
     Dosage: 2.5MG PER DAY
     Route: 048
  5. DOXYLAMINE [Concomitant]
     Indication: SLEEP DISORDER
     Dosage: 25MG PER DAY
     Route: 048

REACTIONS (6)
  - Epilepsy [Unknown]
  - Petit mal epilepsy [Unknown]
  - Generalised tonic-clonic seizure [Unknown]
  - Weight increased [Unknown]
  - Abnormal behaviour [Unknown]
  - Therapeutic response decreased [Unknown]
